FAERS Safety Report 5089634-1 (Version None)
Quarter: 2006Q3

REPORT INFORMATION
  Report Type: 
  Country: None (occurrence: None)
  Receive Date: 20060822
  Receipt Date: 20060810
  Transmission Date: 20061208
  Serious: Yes (Other)
  Sender: FDA-Public Use
  Company Number: USA-2006-0024339

PATIENT
  Age: 31 Year
  Sex: Male
  Weight: 90.7 kg

DRUGS (9)
  1. OXYCONTIN [Suspect]
     Indication: BACK PAIN
     Dosage: SEE IMAGE
     Dates: start: 20060101
  2. OXYCONTIN [Suspect]
     Indication: BACK PAIN
     Dosage: SEE IMAGE
     Dates: start: 20060412
  3. NORCO [Concomitant]
  4. COREG (CAVEDILOL [Concomitant]
  5. LISINOPRIL [Concomitant]
  6. HYDROCHLOROTHIAZIDE [Concomitant]
  7. LEVAQUIN (LEVOLFOXACIN) [Concomitant]
  8. NORTRIPTYLINE HCL [Concomitant]
  9. ALBUTEROL [Concomitant]

REACTIONS (9)
  - DRUG ABUSER [None]
  - DYSPNOEA [None]
  - INADEQUATE ANALGESIA [None]
  - INTENTIONAL DRUG MISUSE [None]
  - OVERDOSE [None]
  - PNEUMONIA [None]
  - SOMNOLENCE [None]
  - TREATMENT NONCOMPLIANCE [None]
  - UPPER RESPIRATORY TRACT INFECTION [None]
